FAERS Safety Report 5191299-5 (Version None)
Quarter: 2006Q4

REPORT INFORMATION
  Report Type: 
  Country: None (occurrence: None)
  Receive Date: 20061219
  Receipt Date: 20061219
  Transmission Date: 20070319
  Serious: Yes (Life-Threatening, Hospitalization, Other)
  Sender: FDA-Public Use
  Company Number: None

PATIENT
  Age: 4 Year
  Sex: Male
  Weight: 113.3993 kg

DRUGS (1)
  1. ACTIQ [Suspect]
     Indication: PAIN
     Dosage: 1600 MCGS 10 PO
     Route: 048
     Dates: start: 20010401, end: 20060317

REACTIONS (2)
  - DRUG WITHDRAWAL SYNDROME [None]
  - THERAPY CESSATION [None]
